FAERS Safety Report 15279862 (Version 1)
Quarter: 2018Q3

REPORT INFORMATION
  Report Type: Spontaneous
  Country: US (occurrence: US)
  Receive Date: 20180730
  Receipt Date: 20180730
  Transmission Date: 20181010
  Serious: Yes (Life-Threatening, Disabling, Other)
  Sender: FDA-Public Use
  Company Number: None

PATIENT
  Age: 37 Year
  Sex: Female
  Weight: 112.5 kg

DRUGS (4)
  1. ALEVE [Concomitant]
     Active Substance: NAPROXEN SODIUM
  2. DIUREX [Concomitant]
     Active Substance: AMILORIDE HYDROCHLORIDE\HYDROCHLOROTHIAZIDE
  3. TRINTELLIX [Suspect]
     Active Substance: VORTIOXETINE HYDROBROMIDE
     Indication: PRODUCT USED FOR UNKNOWN INDICATION
     Route: 048
     Dates: start: 20180528, end: 20180606
  4. ALBUTEROL. [Concomitant]
     Active Substance: ALBUTEROL

REACTIONS (9)
  - Dysuria [None]
  - Acute kidney injury [None]
  - Blood urine present [None]
  - Dyspnoea [None]
  - Joint swelling [None]
  - Peripheral swelling [None]
  - Oedema [None]
  - Hypertension [None]
  - Palpitations [None]

NARRATIVE: CASE EVENT DATE: 20180607
